FAERS Safety Report 9846583 (Version 4)
Quarter: 2014Q2

REPORT INFORMATION
  Report Type: Spontaneous
  Country: US (occurrence: US)
  Receive Date: 20140127
  Receipt Date: 20140417
  Transmission Date: 20141212
  Serious: Yes (Hospitalization)
  Sender: FDA-Public Use
  Company Number: US-GLAXOSMITHKLINE-A1057492A

PATIENT
  Age: 72 Year
  Sex: Female

DRUGS (10)
  1. ADVAIR HFA [Suspect]
     Indication: CHRONIC OBSTRUCTIVE PULMONARY DISEASE
     Dosage: 1PUFF PER DAY
     Route: 055
     Dates: start: 2011
  2. VENTOLIN [Suspect]
     Indication: CHRONIC OBSTRUCTIVE PULMONARY DISEASE
     Dosage: 1PUFF AS REQUIRED
     Route: 055
     Dates: start: 201310
  3. SPIRIVA [Concomitant]
  4. OXYGEN [Concomitant]
  5. PLAVIX [Concomitant]
  6. LIPITOR [Concomitant]
  7. BENICAR [Concomitant]
  8. BLOOD PRESSURE MEDICATION [Concomitant]
  9. BABY ASPIRIN [Concomitant]
  10. NYSTATIN [Concomitant]

REACTIONS (6)
  - Pneumonia bacterial [Recovering/Resolving]
  - Oral candidiasis [Recovering/Resolving]
  - Burning sensation [Unknown]
  - Drug ineffective [Unknown]
  - Drug administration error [Unknown]
  - Product quality issue [Unknown]
